FAERS Safety Report 15834227 (Version 1)
Quarter: 2019Q1

REPORT INFORMATION
  Report Type: Report from Study
  Country: CA (occurrence: CA)
  Receive Date: 20190116
  Receipt Date: 20190116
  Transmission Date: 20190417
  Serious: Yes (Other)
  Sender: FDA-Public Use
  Company Number: CA-JNJFOC-20181112365

PATIENT
  Age: 37 Year
  Sex: Female
  Weight: 88.9 kg

DRUGS (8)
  1. REMICADE [Suspect]
     Active Substance: INFLIXIMAB
     Indication: PYODERMA GANGRENOSUM
     Dosage: STRENGTH = 100 MG
     Route: 042
     Dates: start: 2016
  2. REMICADE [Suspect]
     Active Substance: INFLIXIMAB
     Indication: PYODERMA GANGRENOSUM
     Route: 042
     Dates: start: 20181108
  3. ASACOL [Concomitant]
     Active Substance: MESALAMINE
     Route: 065
  4. DILAUDID [Concomitant]
     Active Substance: HYDROMORPHONE HYDROCHLORIDE
     Route: 065
  5. REMICADE [Suspect]
     Active Substance: INFLIXIMAB
     Indication: CROHN^S DISEASE
     Dosage: STRENGTH = 100 MG
     Route: 042
     Dates: start: 2016
  6. CLAVULIN [Suspect]
     Active Substance: AMOXICILLIN\CLAVULANIC ACID
     Indication: PYODERMA GANGRENOSUM
     Route: 048
  7. REMICADE [Suspect]
     Active Substance: INFLIXIMAB
     Indication: CROHN^S DISEASE
     Route: 042
     Dates: start: 20181108
  8. BISOPROLOL [Concomitant]
     Active Substance: BISOPROLOL
     Route: 065

REACTIONS (8)
  - Crohn^s disease [Not Recovered/Not Resolved]
  - Genital abscess [Unknown]
  - Pyoderma gangrenosum [Unknown]
  - Nausea [Recovered/Resolved]
  - Arthralgia [Not Recovered/Not Resolved]
  - Product use issue [Unknown]
  - Infusion related reaction [Recovered/Resolved]
  - Off label use [Unknown]

NARRATIVE: CASE EVENT DATE: 20181108
